FAERS Safety Report 7354409-7 (Version None)
Quarter: 2011Q1

REPORT INFORMATION
  Report Type: 
  Country: None (occurrence: None)
  Receive Date: 20110316
  Receipt Date: 20110302
  Transmission Date: 20110831
  Serious: Yes (Other)
  Sender: FDA-Public Use
  Company Number: PHHY2011NO17482

PATIENT
  Sex: Male

DRUGS (3)
  1. LEPONEX [Suspect]
     Dosage: 600 MG, QD
  2. LEPONEX [Suspect]
     Dosage: 400 MG, QD
  3. KEPPRA [Concomitant]
     Dosage: 1000 MG, QD

REACTIONS (7)
  - VOMITING [None]
  - HEPATIC ENZYME ABNORMAL [None]
  - FATIGUE [None]
  - MUSCLE SPASMS [None]
  - NAUSEA [None]
  - PSYCHOTIC DISORDER [None]
  - ANTIPSYCHOTIC DRUG LEVEL INCREASED [None]
